FAERS Safety Report 18981131 (Version 1)
Quarter: 2021Q1

REPORT INFORMATION
  Report Type: Spontaneous
  Country: US (occurrence: US)
  Receive Date: 20210308
  Receipt Date: 20210308
  Transmission Date: 20210420
  Serious: No
  Sender: FDA-Public Use
  Company Number: None

PATIENT
  Age: 68 Year
  Sex: Female
  Weight: 41 kg

DRUGS (19)
  1. ASCORBIC ACID. [Concomitant]
     Active Substance: ASCORBIC ACID
  2. IVERMECTIN. [Concomitant]
     Active Substance: IVERMECTIN
  3. THIAMINE. [Concomitant]
     Active Substance: THIAMINE
  4. ACETYLESTINE [Concomitant]
  5. CAFFEINE TABLET [Concomitant]
  6. VITAMIN B [Concomitant]
     Active Substance: VITAMIN B
  7. LOVENOX [Concomitant]
     Active Substance: ENOXAPARIN SODIUM
  8. IRBESARTAN?HCTZ [Concomitant]
     Active Substance: HYDROCHLOROTHIAZIDE\IRBESARTAN
  9. VITAMIN D3 [Concomitant]
     Active Substance: CHOLECALCIFEROL
  10. VITAMIN D 2 [Concomitant]
  11. AMPICILLIN [Concomitant]
     Active Substance: AMPICILLIN
  12. ELEQUIS [Concomitant]
  13. DRONABINOL. [Concomitant]
     Active Substance: DRONABINOL
  14. FLAGYL [Concomitant]
     Active Substance: METRONIDAZOLE\METRONIDAZOLE HYDROCHLORIDE
  15. REMDESIVIR. [Suspect]
     Active Substance: REMDESIVIR
     Indication: COVID-19
     Route: 042
     Dates: start: 20210305, end: 20210305
  16. CEFTRIAXONE SODIUM. [Concomitant]
     Active Substance: CEFTRIAXONE SODIUM
  17. ASPIRIN. [Concomitant]
     Active Substance: ASPIRIN
  18. COLCRYS [Concomitant]
     Active Substance: COLCHICINE
  19. PEPCID [Concomitant]
     Active Substance: FAMOTIDINE

REACTIONS (1)
  - Bradycardia [None]

NARRATIVE: CASE EVENT DATE: 20210305
